FAERS Safety Report 9088609 (Version 2)
Quarter: 2013Q1

REPORT INFORMATION
  Report Type: Spontaneous
  Country: US (occurrence: US)
  Receive Date: 20130201
  Receipt Date: 20130225
  Transmission Date: 20140127
  Serious: Yes (Death)
  Sender: FDA-Public Use
  Company Number: US-INCYTE CORPORATION-2013IN000189

PATIENT
  Age: 65 Year
  Sex: Male

DRUGS (4)
  1. JAKAFI [Suspect]
     Indication: MYELOFIBROSIS
     Dosage: 10 MG, BID
     Route: 048
     Dates: start: 201203, end: 2012
  2. JAKAFI [Suspect]
     Dosage: NOT SPECIFIED
     Route: 048
     Dates: start: 201208
  3. EXJADE [Concomitant]
  4. ALLOPURINOL [Concomitant]

REACTIONS (1)
  - Intestinal perforation [Fatal]
